FAERS Safety Report 4393992-0 (Version None)
Quarter: 2004Q3

REPORT INFORMATION
  Report Type: 
  Country: None (occurrence: None)
  Receive Date: 20040709
  Receipt Date: 20040621
  Transmission Date: 20050211
  Serious: Yes (Hospitalization)
  Sender: FDA-Public Use
  Company Number: HK-MERCK-0406HKG00008

PATIENT
  Age: 50 Year
  Sex: Male

DRUGS (2)
  1. CORTICOSTEROIDS (UNSPECIFIED) [Concomitant]
     Indication: ASTHMA
     Route: 055
  2. SINGULAIR [Suspect]
     Indication: ASTHMA
     Route: 048
     Dates: start: 20010101

REACTIONS (2)
  - ALLERGIC GRANULOMATOUS ANGIITIS [None]
  - GOUTY ARTHRITIS [None]
